FAERS Safety Report 16764372 (Version 2)
Quarter: 2020Q3

REPORT INFORMATION
  Report Type: Spontaneous
  Country: DE (occurrence: DE)
  Receive Date: 20190902
  Receipt Date: 20200905
  Transmission Date: 20201102
  Serious: Yes (Other)
  Sender: FDA-Public Use
  Company Number: PHHY2019DE200495

PATIENT
  Sex: Female
  Weight: 87 kg

DRUGS (12)
  1. FOLIFORT [Concomitant]
     Dosage: 0.8 MG, QD (1 TRIMESTER) (0. ? 39. GESTATIONAL WEEK )
     Route: 048
     Dates: start: 20170204
  2. HUMALOG MIX50/50 [Concomitant]
     Active Substance: INSULIN LISPRO
     Dosage: 28 IU (INTERNATIONAL UNIT), QD (3 TRIMESTER)
     Route: 058
     Dates: start: 20170204
  3. L?THYROX [Concomitant]
     Active Substance: LEVOTHYROXINE SODIUM
     Indication: HYPOTHYROIDISM
     Dosage: 75 UG, QD (3 TRIMESTER) (27.3 ?39. GESTATIONAL WEEK )
     Route: 048
  4. FOLIFORT [Concomitant]
     Indication: PROPHYLAXIS OF NEURAL TUBE DEFECT
     Dosage: 0.8 MG, QD (1 TRIMESTER) (0. ? 39. GESTATIONAL WEEK )
     Route: 048
     Dates: start: 20160507
  5. VENLAFAXINE [Suspect]
     Active Substance: VENLAFAXINE HYDROCHLORIDE
     Indication: DEPRESSION
     Dosage: 75 MG, QD (1 TRIMESTER)(0. ? 39. GESTATIONAL WEEK)
     Route: 048
     Dates: start: 20160507
  6. LANTUS [Concomitant]
     Active Substance: INSULIN GLARGINE
     Indication: GESTATIONAL DIABETES
     Dosage: 34 IU (INTERNATIONAL UNIT), QD (3 TRIMESTER)(30.3. ? 39. GESTATIONAL WEEK )
     Route: 058
     Dates: start: 20161206, end: 20170204
  7. VENLAFAXINE [Suspect]
     Active Substance: VENLAFAXINE HYDROCHLORIDE
     Dosage: 75 MG, QD (1 TRIMESTER)(0. ? 39. GESTATIONAL WEEK)
     Route: 048
     Dates: start: 20170204
  8. GRIPPEIMPFSTOFF [Concomitant]
     Active Substance: INFLUENZA VIRUS VACCINE
     Indication: IMMUNISATION
     Dosage: (2 TRIMESTER) (23.?23. GESTATIONAL WEEK)
     Route: 030
  9. HUMALOG [Concomitant]
     Active Substance: INSULIN LISPRO
     Indication: GESTATIONAL DIABETES
     Dosage: 24 IU(INTERNATIONAL UNIT), QD (3 TRIMESTER) (28.4. ? 39. GESTATIONAL WEEK )
     Route: 058
  10. OLANZAPINE. [Suspect]
     Active Substance: OLANZAPINE
     Indication: ANXIETY DISORDER
     Dosage: 5 MG, QD (1 TRIMESTER)(0?39. GESTATIONAL WEEK )
     Route: 048
     Dates: start: 20160507
  11. OLANZAPINE. [Suspect]
     Active Substance: OLANZAPINE
     Dosage: 5 MG, QD (1 TRIMESTER)(0?39. GESTATIONAL WEEK )
     Route: 048
     Dates: start: 20170204
  12. HUMALOG MIX50/50 [Concomitant]
     Active Substance: INSULIN LISPRO
     Indication: GESTATIONAL DIABETES
     Dosage: 28 IU (INTERNATIONAL UNIT), QD (3 TRIMESTER)
     Route: 058
     Dates: start: 20161201, end: 20170204

REACTIONS (2)
  - Gestational diabetes [Recovered/Resolved]
  - Maternal exposure during pregnancy [Unknown]
